FAERS Safety Report 6534095 (Version 5)
Quarter: 2013Q4

REPORT INFORMATION
  Report Type: Spontaneous
  Country: US (occurrence: US)
  Receive Date: 20080124
  Receipt Date: 20131118
  Transmission Date: 20140711
  Serious: Yes (Death, Hospitalization, Other)
  Sender: FDA-Public Use
  Company Number: US-MERCK-0706USA00929

PATIENT
  Sex: Female

DRUGS (2)
  1. FOSAMAX [Suspect]
     Indication: OSTEOPOROSIS
     Dosage: 10 MG, QD
     Route: 048
     Dates: end: 20060605
  2. VITAMINS (UNSPECIFIED) [Concomitant]

REACTIONS (24)
  - Dementia [Unknown]
  - Osteomyelitis [Unknown]
  - Traumatic fracture [Unknown]
  - Myocardial infarction [Unknown]
  - Death [Fatal]
  - Diarrhoea [Recovered/Resolved]
  - Osteomyelitis [Not Recovered/Not Resolved]
  - Osteonecrosis of jaw [Unknown]
  - Acanthosis [Unknown]
  - Mucosal inflammation [Unknown]
  - Failure to thrive [Unknown]
  - Actinomycosis [Unknown]
  - Decubitus ulcer [Unknown]
  - Gastrointestinal haemorrhage [Unknown]
  - Skin ulcer [Unknown]
  - Fungal infection [Unknown]
  - Urinary tract infection [Unknown]
  - Chronic obstructive pulmonary disease [Not Recovered/Not Resolved]
  - Emphysema [Unknown]
  - Hyperaemia [Unknown]
  - Decreased appetite [Unknown]
  - Wheezing [Unknown]
  - Pneumonia [Unknown]
  - Asthenia [Unknown]
